FAERS Safety Report 16183702 (Version 1)
Quarter: 2019Q2

REPORT INFORMATION
  Report Type: Spontaneous
  Country: US (occurrence: US)
  Receive Date: 20190308
  Receipt Date: 20190308
  Transmission Date: 20190711
  Serious: No
  Sender: FDA-Public Use
  Company Number: None

PATIENT
  Age: 42 Year
  Sex: Female

DRUGS (1)
  1. STELARA [Suspect]
     Active Substance: USTEKINUMAB
     Indication: PSORIASIS
     Dosage: ?          OTHER FREQUENCY:EVERY 90 DAYS;?
     Route: 058

REACTIONS (4)
  - Myalgia [None]
  - Muscle swelling [None]
  - Pruritus [None]
  - Peripheral swelling [None]

NARRATIVE: CASE EVENT DATE: 20180227
